FAERS Safety Report 6369547-5 (Version None)
Quarter: 2009Q3

REPORT INFORMATION
  Report Type: 
  Country: None (occurrence: None)
  Receive Date: 20090923
  Receipt Date: 20090915
  Transmission Date: 20100115
  Serious: Yes (Other)
  Sender: FDA-Public Use
  Company Number: BR-JNJFOC-20090905024

PATIENT
  Age: 22 Year
  Sex: Female
  Weight: 50 kg

DRUGS (3)
  1. ORTHO EVRA [Suspect]
     Indication: CONTRACEPTION
     Dosage: NORELGESTROMIN 6 MG/ETHINYL ESTRADIOL 0.6 MG
     Route: 062
  2. AMOXICILLIN [Interacting]
     Indication: PHARYNGITIS
     Route: 065
  3. ANTIBIOTIC UNSPECIFIED [Interacting]
     Indication: PHARYNGITIS
     Route: 065

REACTIONS (8)
  - APPLICATION SITE ERYTHEMA [None]
  - APPLICATION SITE PRURITUS [None]
  - DRUG ADMINISTERED AT INAPPROPRIATE SITE [None]
  - DRUG INTERACTION [None]
  - HYPERSENSITIVITY [None]
  - OFF LABEL USE [None]
  - PHARYNGITIS [None]
  - THERAPEUTIC RESPONSE UNEXPECTED [None]
